FAERS Safety Report 13719126 (Version 6)
Quarter: 2017Q3

REPORT INFORMATION
  Report Type: Spontaneous
  Country: IT (occurrence: IT)
  Receive Date: 20170705
  Receipt Date: 20170725
  Transmission Date: 20171127
  Serious: Yes (Hospitalization, Other)
  Sender: FDA-Public Use
  Company Number: IT-PFIZER INC-2017291354

PATIENT
  Age: 77 Year
  Sex: Female

DRUGS (5)
  1. SIVASTIN [Concomitant]
     Active Substance: SIMVASTATIN
     Dosage: UNK
  2. CARDIOASPIRIN [Concomitant]
     Active Substance: ASPIRIN
     Dosage: UNK
  3. DUROGESIC [Suspect]
     Active Substance: FENTANYL
     Indication: SPINAL PAIN
     Dosage: 50 UG, AS NEEDED (EVERY HOUR)
     Route: 062
     Dates: start: 20170316, end: 20170316
  4. LYRICA [Suspect]
     Active Substance: PREGABALIN
     Indication: MYELOPATHY
     Dosage: 50 MG, DAILY
     Route: 048
     Dates: start: 20170315, end: 20170316
  5. RAMIPRIL. [Suspect]
     Active Substance: RAMIPRIL
     Indication: HYPERTENSION
     Dosage: 5 MG, DAILY
     Route: 048
     Dates: start: 20170316, end: 20170316

REACTIONS (8)
  - Vomiting [Recovered/Resolved]
  - Malaise [Recovered/Resolved]
  - Drug intolerance [Unknown]
  - Hyponatraemia [Recovered/Resolved]
  - Dizziness [Recovered/Resolved]
  - Nausea [Recovered/Resolved]
  - Glucose tolerance impaired [Unknown]
  - Overdose [Recovered/Resolved]

NARRATIVE: CASE EVENT DATE: 20170316
